FAERS Safety Report 10100202 (Version 2)
Quarter: 2014Q2

REPORT INFORMATION
  Report Type: Spontaneous
  Country: US (occurrence: US)
  Receive Date: 20140423
  Receipt Date: 20140423
  Transmission Date: 20141212
  Serious: No
  Sender: FDA-Public Use
  Company Number: US-GILEAD-2013-0075320

PATIENT
  Age: 68 Year
  Sex: Female

DRUGS (4)
  1. LETAIRIS [Suspect]
     Indication: PULMONARY HYPERTENSION
     Dosage: 5 MG, QD
     Route: 048
     Dates: start: 20121107
  2. LETAIRIS [Suspect]
     Indication: SLEEP APNOEA SYNDROME
  3. LETAIRIS [Suspect]
     Indication: CHRONIC OBSTRUCTIVE PULMONARY DISEASE
  4. ADCIRCA [Concomitant]

REACTIONS (6)
  - Dysphonia [Unknown]
  - Urinary tract infection [Unknown]
  - Dysuria [Unknown]
  - Tremor [Unknown]
  - Dyspnoea [Unknown]
  - Oedema [Unknown]
